FAERS Safety Report 7880895-X (Version None)
Quarter: 2011Q4

REPORT INFORMATION
  Report Type: 
  Country: None (occurrence: None)
  Receive Date: 20111101
  Receipt Date: 20111021
  Transmission Date: 20120403
  Serious: Yes (Other)
  Sender: FDA-Public Use
  Company Number: PT-BAXTER-2011BH032939

PATIENT
  Age: 63 Year
  Sex: Female

DRUGS (8)
  1. SEVOFLURANE [Suspect]
     Indication: INDUCTION AND MAINTENANCE OF ANAESTHESIA
     Route: 055
     Dates: start: 20111014, end: 20111014
  2. SEVOFLURANE [Suspect]
     Route: 055
     Dates: start: 20111014, end: 20111014
  3. FENTANYL-100 [Suspect]
     Indication: PRODUCT USED FOR UNKNOWN INDICATION
     Route: 042
     Dates: start: 20111014, end: 20111014
  4. SUXAMETHONIUM [Suspect]
     Indication: PRODUCT USED FOR UNKNOWN INDICATION
     Route: 042
     Dates: start: 20111014, end: 20111014
  5. SEVOFLURANE [Suspect]
     Route: 055
     Dates: start: 20111014, end: 20111014
  6. DROPERIDOL [Suspect]
     Indication: PRODUCT USED FOR UNKNOWN INDICATION
     Route: 042
     Dates: start: 20111014, end: 20111014
  7. ATRACURIUM BESYLATE [Suspect]
     Indication: PRODUCT USED FOR UNKNOWN INDICATION
     Route: 042
     Dates: start: 20111014, end: 20111014
  8. PROPOFOL [Suspect]
     Indication: PRODUCT USED FOR UNKNOWN INDICATION
     Route: 042
     Dates: start: 20111014, end: 20111014

REACTIONS (2)
  - UNWANTED AWARENESS DURING ANAESTHESIA [None]
  - DRUG INEFFECTIVE [None]
